FAERS Safety Report 4802973-1 (Version None)
Quarter: 2005Q4

REPORT INFORMATION
  Report Type: 
  Country: None (occurrence: None)
  Receive Date: 20051013
  Receipt Date: 20050926
  Transmission Date: 20060501
  Serious: Yes (Death, Other)
  Sender: FDA-Public Use
  Company Number: JP_050807269

PATIENT
  Age: 27 Year
  Sex: Male
  Weight: 103 kg

DRUGS (7)
  1. ZYPREXA [Suspect]
     Dosage: 10 MG/1 DAY
     Dates: start: 20030408
  2. RISPERDAL [Concomitant]
  3. VALPROATE SODIUM [Concomitant]
  4. LENDORM [Concomitant]
  5. DORAL [Concomitant]
  6. NITRAZEPAM [Concomitant]
  7. NIZATIDINE [Concomitant]

REACTIONS (20)
  - ALANINE AMINOTRANSFERASE INCREASED [None]
  - ASPARTATE AMINOTRANSFERASE INCREASED [None]
  - BLOOD CHOLESTEROL INCREASED [None]
  - BLOOD TRIGLYCERIDES INCREASED [None]
  - CARDIAC ARREST [None]
  - CYANOSIS [None]
  - DIABETIC COMA [None]
  - FATIGUE [None]
  - GAMMA-GLUTAMYLTRANSFERASE INCREASED [None]
  - HAEMATEMESIS [None]
  - HUNGER [None]
  - HYPOVENTILATION [None]
  - INCREASED APPETITE [None]
  - KETOSIS [None]
  - LOSS OF CONSCIOUSNESS [None]
  - METABOLIC SYNDROME [None]
  - MYDRIASIS [None]
  - PUPILLARY REFLEX IMPAIRED [None]
  - VENTRICULAR FIBRILLATION [None]
  - WEIGHT INCREASED [None]
